FAERS Safety Report 6860827-3 (Version None)
Quarter: 2010Q3

REPORT INFORMATION
  Report Type: 
  Country: None (occurrence: None)
  Receive Date: 20100720
  Receipt Date: 20100716
  Transmission Date: 20110219
  Serious: Yes (Hospitalization)
  Sender: FDA-Public Use
  Company Number: FR-MERCK-1007FRA00063

PATIENT
  Age: 45 Year
  Sex: Female

DRUGS (2)
  1. NOROXIN [Suspect]
     Indication: DYSURIA
     Route: 048
     Dates: start: 20100401, end: 20100401
  2. PREDNISOLONE SODIUM METAZOATE [Concomitant]
     Route: 048

REACTIONS (1)
  - CYTOLYTIC HEPATITIS [None]
